FAERS Safety Report 13168674 (Version 1)
Quarter: 2017Q1

REPORT INFORMATION
  Report Type: Spontaneous
  Country: US (occurrence: US)
  Receive Date: 20170131
  Receipt Date: 20170131
  Transmission Date: 20170428
  Serious: No
  Sender: FDA-Public Use
  Company Number: US-GLAXOSMITHKLINE-US2017013375

PATIENT
  Sex: Female

DRUGS (1)
  1. FLOVENT [Suspect]
     Active Substance: FLUTICASONE PROPIONATE
     Indication: COUGH
     Dosage: 1 PUFF(S), 1D
     Route: 055

REACTIONS (4)
  - Underdose [Unknown]
  - Product cleaning inadequate [Recovered/Resolved]
  - Product use issue [Unknown]
  - Device use error [Recovered/Resolved]
